FAERS Safety Report 6486463-9 (Version None)
Quarter: 2009Q4

REPORT INFORMATION
  Report Type: 
  Country: None (occurrence: None)
  Receive Date: 20091210
  Receipt Date: 20091130
  Transmission Date: 20100525
  Serious: Yes (Hospitalization)
  Sender: FDA-Public Use
  Company Number: IE-KINGPHARMUSA00001-K200901500

PATIENT
  Age: 27 Year
  Sex: Male

DRUGS (6)
  1. LEVOXYL [Suspect]
     Indication: HYPOPITUITARISM
     Dosage: 200 MCG, QD
     Dates: end: 20080801
  2. LEVOXYL [Suspect]
     Dosage: 125 MCG, QD
     Dates: start: 20080801
  3. HYDROCORTISONE [Concomitant]
     Indication: HYPOPITUITARISM
     Dosage: 10 MG, BID
  4. HUMAN GROWTH HORMONE, RECOMBINANT [Concomitant]
     Indication: HYPOPITUITARISM
  5. TESTOSTERONE [Concomitant]
     Indication: HYPOPITUITARISM
  6. DESMOPRESSIN [Concomitant]

REACTIONS (4)
  - HYPOKALAEMIA [None]
  - MUSCULAR WEAKNESS [None]
  - PARALYSIS FLACCID [None]
  - THYROTOXIC PERIODIC PARALYSIS [None]
